FAERS Safety Report 5635888-X (Version None)
Quarter: 2008Q1

REPORT INFORMATION
  Report Type: 
  Country: None (occurrence: None)
  Receive Date: 20080221
  Receipt Date: 20080206
  Transmission Date: 20080703
  Serious: Yes (Hospitalization)
  Sender: FDA-Public Use
  Company Number: 2008S1002216

PATIENT
  Age: 55 Year
  Sex: Female

DRUGS (1)
  1. ACYCLOVIR [Suspect]
     Indication: ORAL HERPES
     Dosage: 800 MG; ORAL, 200 MG; ORAL; DAILY, 200 MG; DAILY, ORAL
     Route: 048

REACTIONS (10)
  - COMA [None]
  - CONFUSIONAL STATE [None]
  - DELIRIUM [None]
  - DIZZINESS [None]
  - ENCEPHALITIS HERPES [None]
  - EPILEPSY [None]
  - HALLUCINATION [None]
  - HEADACHE [None]
  - NAUSEA [None]
  - VOMITING [None]
